FAERS Safety Report 8049327-5 (Version None)
Quarter: 2011Q4

REPORT INFORMATION
  Report Type: 
  Country: None (occurrence: None)
  Receive Date: 20111209
  Receipt Date: 20110930
  Transmission Date: 20120403
  Serious: No
  Sender: FDA-Public Use
  Company Number: TH-2011-00422

PATIENT
  Age: 54 Year
  Sex: Female

DRUGS (2)
  1. EGRIFTA [Suspect]
     Indication: LIPODYSTROPHY ACQUIRED
     Dosage: 1 IN 1 D, SUBCUTANEOUS
     Route: 058
     Dates: start: 20110801
  2. UNSPECIFIED MEDICATIONS (LIST) [Concomitant]

REACTIONS (7)
  - CONCUSSION [None]
  - VISION BLURRED [None]
  - ROAD TRAFFIC ACCIDENT [None]
  - CONTUSION [None]
  - ERYTHEMA [None]
  - OEDEMA PERIPHERAL [None]
  - ARTHRALGIA [None]
